FAERS Safety Report 9728867 (Version 1)
Quarter: 2013Q4

REPORT INFORMATION
  Report Type: Spontaneous
  Country: US (occurrence: US)
  Receive Date: 20131204
  Receipt Date: 20131204
  Transmission Date: 20140711
  Serious: No
  Sender: FDA-Public Use
  Company Number: US-BIOGENIDEC-2013BI098097

PATIENT
  Sex: Female

DRUGS (8)
  1. TECFIDERA [Suspect]
     Indication: MULTIPLE SCLEROSIS
     Route: 048
     Dates: start: 20130617
  2. CYCLOBENZAPRINE HCL [Concomitant]
  3. MECLIZINE HCL [Concomitant]
  4. NAPROXEN [Concomitant]
  5. OXYCODONE HCL [Concomitant]
  6. TYLENOL [Concomitant]
  7. VALIUM [Concomitant]
  8. ZOFRAN [Concomitant]

REACTIONS (2)
  - Malaise [Unknown]
  - Feeling abnormal [Unknown]
